FAERS Safety Report 8177277-2 (Version None)
Quarter: 2012Q1

REPORT INFORMATION
  Report Type: 
  Country: None (occurrence: None)
  Receive Date: 20120126
  Receipt Date: 20111108
  Transmission Date: 20120608
  Serious: No
  Sender: FDA-Public Use
  Company Number: PHEH2011US008877

PATIENT
  Age: 78 Year
  Sex: Male

DRUGS (10)
  1. HYDROCORTISONE [Concomitant]
  2. SIMVASTATIN [Concomitant]
  3. LISINOPRIL [Concomitant]
  4. LABETALOL HCL [Concomitant]
  5. IRON [Concomitant]
  6. NEXIUM [Concomitant]
  7. VITAMIN D [Concomitant]
  8. AFINITOR [Suspect]
     Dosage: 10 MG, QD
  9. FLUDROCORTISONE ACETATE [Concomitant]
  10. COUMADIN [Concomitant]

REACTIONS (2)
  - PRODUCT LABEL ISSUE [None]
  - OEDEMA PERIPHERAL [None]
